FAERS Safety Report 18700552 (Version 1)
Quarter: 2021Q1

REPORT INFORMATION
  Report Type: Spontaneous
  Country: US (occurrence: US)
  Receive Date: 20210105
  Receipt Date: 20210105
  Transmission Date: 20210419
  Serious: Yes (Death, Other)
  Sender: FDA-Public Use
  Company Number: US-SA-2021SA001813

PATIENT

DRUGS (1)
  1. ZANTAC [Suspect]
     Active Substance: RANITIDINE HYDROCHLORIDE
     Indication: DYSPEPSIA
     Dosage: UNK
     Dates: start: 200001, end: 201905

REACTIONS (6)
  - Gastric cancer stage IV [Fatal]
  - Renal cancer stage IV [Unknown]
  - Lung neoplasm malignant [Fatal]
  - Pancreatic carcinoma stage IV [Fatal]
  - Hepatic cancer stage IV [Fatal]
  - Bladder cancer stage IV [Fatal]

NARRATIVE: CASE EVENT DATE: 20200104
